FAERS Safety Report 21081993 (Version 1)
Quarter: 2022Q3

REPORT INFORMATION
  Report Type: Report from Study
  Country: FR (occurrence: FR)
  Receive Date: 20220714
  Receipt Date: 20220714
  Transmission Date: 20221027
  Serious: Yes (Hospitalization)
  Sender: FDA-Public Use
  Company Number: FR-JNJFOC-20220663464

PATIENT
  Age: 69 Year
  Sex: Male

DRUGS (10)
  1. DEXAMETHASONE [Suspect]
     Active Substance: DEXAMETHASONE
     Indication: Plasma cell myeloma
     Route: 048
     Dates: start: 20220330, end: 20220516
  2. VELCADE [Suspect]
     Active Substance: BORTEZOMIB
     Indication: Plasma cell myeloma
     Route: 058
     Dates: start: 20220330, end: 20220519
  3. EFTOZANERMIN ALFA [Suspect]
     Active Substance: EFTOZANERMIN ALFA
     Indication: Plasma cell myeloma
     Dosage: ON DAYS 1 AND 8 DURING CYCLES 1-8
     Route: 042
     Dates: start: 20220330, end: 20220516
  4. AMLODAC D [Concomitant]
     Indication: Product used for unknown indication
     Dosage: 10 + 1,5 MG
     Route: 048
  5. LANSOPRAZOLE [Concomitant]
     Active Substance: LANSOPRAZOLE
     Indication: Product used for unknown indication
     Route: 048
  6. ATOVAQUONE [Concomitant]
     Active Substance: ATOVAQUONE
     Indication: Parasitic infection prophylaxis
     Dosage: (750 MG,2 IN 1 D)
     Route: 048
     Dates: start: 2021
  7. METFORMIN [Concomitant]
     Active Substance: METFORMIN HYDROCHLORIDE
     Indication: Product used for unknown indication
     Dosage: 500 MG,3 IN 1 D
     Route: 048
  8. KARDEGIC [Concomitant]
     Active Substance: ASPIRIN DL-LYSINE
     Indication: Product used for unknown indication
     Route: 048
  9. VALACYCLOVIR (VALACICLOVIR) [Concomitant]
     Indication: Infection prophylaxis
     Route: 048
  10. BETAXOLOL [Concomitant]
     Active Substance: BETAXOLOL
     Indication: Hypertension
     Route: 048

REACTIONS (4)
  - Diplopia [Not Recovered/Not Resolved]
  - Diarrhoea [Unknown]
  - Blood urine present [Unknown]
  - Dyspnoea [Unknown]

NARRATIVE: CASE EVENT DATE: 20220428
